FAERS Safety Report 11019356 (Version 2)
Quarter: 2015Q2

REPORT INFORMATION
  Report Type: Spontaneous
  Country: US (occurrence: US)
  Receive Date: 20150412
  Receipt Date: 20150525
  Transmission Date: 20150821
  Serious: No
  Sender: FDA-Public Use
  Company Number: US-JNJFOC-20130312309

PATIENT
  Sex: Female
  Weight: 97.52 kg

DRUGS (28)
  1. AMLODIPINE [Concomitant]
     Active Substance: AMLODIPINE BESYLATE
     Dosage: EVERY MORNING
     Route: 065
  2. ESTRADIOL. [Concomitant]
     Active Substance: ESTRADIOL
     Dosage: TUESDAY AND FRIDAY
     Route: 067
  3. NYSTATIN. [Concomitant]
     Active Substance: NYSTATIN
     Route: 061
  4. CALCIUM WITH VITAMIN D [Concomitant]
     Active Substance: CALCIUM\VITAMIN D
     Indication: NUTRITIONAL SUPPLEMENTATION
     Route: 065
     Dates: end: 20130301
  5. LEVOFLOXACIN. [Suspect]
     Active Substance: LEVOFLOXACIN
     Indication: UPPER RESPIRATORY TRACT INFECTION
     Route: 065
  6. ROPINIROLE. [Interacting]
     Active Substance: ROPINIROLE
     Indication: RESTLESS LEGS SYNDROME
     Route: 065
  7. BENICAR [Concomitant]
     Active Substance: OLMESARTAN MEDOXOMIL
     Dosage: EVERY MORNING
     Route: 065
  8. VITAMIN C [Concomitant]
     Active Substance: ASCORBIC ACID
     Dosage: EVERY MORNING
     Route: 065
  9. COQ10 [Concomitant]
     Active Substance: UBIDECARENONE
     Indication: NUTRITIONAL SUPPLEMENTATION
     Dosage: EVERY MORNING
     Route: 065
  10. FLAXSEED [Concomitant]
     Active Substance: FLAX SEED
     Indication: NUTRITIONAL SUPPLEMENTATION
     Dosage: ONE TABLESPOON ON FOOD DAILY
     Route: 065
  11. VITAMIN B COMPLEX [Concomitant]
     Active Substance: CYANOCOBALAMIN\DEXPANTHENOL\NIACINAMIDE\PYRIDOXINE HYDROCHLORIDE\RIBOFLAVIN 5^-PHOSPHATE SODIUM\THIAMINE HYDROCHLORIDE\VITAMIN B COMPLEX
     Dosage: EVERY MORNING
     Route: 065
  12. OMEGA VITAMIN [Concomitant]
     Dosage: EVERY NIGHT
     Route: 065
  13. NASACORT [Concomitant]
     Active Substance: TRIAMCINOLONE ACETONIDE
     Route: 065
  14. VIMPAT [Concomitant]
     Active Substance: LACOSAMIDE
     Dosage: EVERY MORNING
     Route: 065
  15. ZYRTEC [Concomitant]
     Active Substance: CETIRIZINE HYDROCHLORIDE
     Dosage: EVERY MORNING
     Route: 065
  16. NAMENDA [Concomitant]
     Active Substance: MEMANTINE HYDROCHLORIDE
     Dosage: AT NIGHT
     Route: 065
  17. PROAIR HFA [Concomitant]
     Active Substance: ALBUTEROL SULFATE
     Dosage: AS NEEDED (PRN) USED ONLY TWICE THIS YEAR
     Route: 065
  18. EPIPEN [Concomitant]
     Active Substance: EPINEPHRINE
     Route: 065
     Dates: end: 2007
  19. VITAMIN D3 [Concomitant]
     Active Substance: CHOLECALCIFEROL
     Indication: NUTRITIONAL SUPPLEMENTATION
     Route: 065
     Dates: end: 20130301
  20. ADVAIR HFA [Concomitant]
     Active Substance: FLUTICASONE PROPIONATE\SALMETEROL XINAFOATE
     Dosage: 100/50
  21. VITAMIN E [Concomitant]
     Active Substance: .ALPHA.-TOCOPHEROL
     Indication: NUTRITIONAL SUPPLEMENTATION
     Dosage: EVERY MORNING
     Route: 065
  22. LEVAQUIN [Suspect]
     Active Substance: LEVOFLOXACIN
     Indication: UPPER RESPIRATORY TRACT INFECTION
     Route: 065
  23. CLOTRIMAZOLE, BETAMETHASONE DIPROPIONATE [Concomitant]
     Route: 065
     Dates: start: 20121203
  24. VITAMIN D3 [Concomitant]
     Active Substance: CHOLECALCIFEROL
     Indication: NUTRITIONAL SUPPLEMENTATION
     Route: 065
     Dates: end: 20130301
  25. YEAST [Concomitant]
     Active Substance: YEAST
     Indication: BLOOD CHOLESTEROL
     Dosage: AT MORNING AND NIGHT
     Route: 065
  26. ASPIRIN. [Concomitant]
     Active Substance: ASPIRIN
     Dosage: EVERY MORNING
     Route: 065
  27. METAMUCIL [Concomitant]
     Active Substance: PLANTAGO SEED
     Dosage: ONE TABLESPOON IN JUICE AT SUPPER TIME, FLUSHES NOSE WITH SALINE MORNING AND NIGHT AND AS NEEDED
     Route: 065
  28. BENICAR HCT [Concomitant]
     Active Substance: HYDROCHLOROTHIAZIDE\OLMESARTAN MEDOXOMIL
     Route: 065

REACTIONS (4)
  - Drug interaction [Unknown]
  - Asthenia [Unknown]
  - Malaise [Unknown]
  - Bedridden [Unknown]
